FAERS Safety Report 26114529 (Version 2)
Quarter: 2025Q4

REPORT INFORMATION
  Report Type: Spontaneous
  Country: US (occurrence: US)
  Receive Date: 20251202
  Receipt Date: 20251210
  Transmission Date: 20260118
  Serious: No
  Sender: AMGEN
  Company Number: US-AMGEN-USASP2025235339

PATIENT
  Age: 68 Year
  Sex: Female

DRUGS (5)
  1. REPATHA [Suspect]
     Active Substance: EVOLOCUMAB
     Indication: Blood cholesterol abnormal
     Dosage: 140 MILLIGRAM, (ONE UNIT) Q2WK
     Route: 058
  2. REPATHA [Suspect]
     Active Substance: EVOLOCUMAB
     Dosage: 140 MILLIGRAM, (ONE UNIT) Q2WK
     Route: 058
     Dates: start: 2023
  3. PROLIA [Suspect]
     Active Substance: DENOSUMAB
     Indication: Bone density abnormal
     Dosage: UNK UNK, Q6MO
     Route: 058
     Dates: start: 2022
  4. SYNTHROID [Concomitant]
     Active Substance: LEVOTHYROXINE SODIUM
     Indication: Autoimmune thyroiditis
     Dosage: 75 MICROGRAM, QD
     Dates: start: 2005
  5. COVID-19 vaccine [Concomitant]

REACTIONS (5)
  - Therapy non-responder [Not Recovered/Not Resolved]
  - Wrong technique in product usage process [Unknown]
  - Device difficult to use [Unknown]
  - Vocal cord paralysis [Not Recovered/Not Resolved]
  - Drug dose omission by device [Unknown]

NARRATIVE: CASE EVENT DATE: 20240901
